FAERS Safety Report 5577794-5 (Version None)
Quarter: 2007Q4

REPORT INFORMATION
  Report Type: 
  Country: None (occurrence: None)
  Receive Date: 20071227
  Receipt Date: 20071218
  Transmission Date: 20080405
  Serious: Yes (Life-Threatening)
  Sender: FDA-Public Use
  Company Number: 2007-168035-NL

PATIENT
  Age: 75 Year
  Sex: Male

DRUGS (12)
  1. DEXAMETHASONE SODIUM PHOSPHATE [Suspect]
     Indication: ANTIALLERGIC THERAPY
     Route: 041
     Dates: start: 20071121, end: 20071121
  2. DEXAMETHASONE SODIUM PHOSPHATE [Suspect]
     Indication: PREMEDICATION
     Route: 041
     Dates: start: 20071121, end: 20071121
  3. RANITIDINE HYDROCHLORIDE [Suspect]
     Indication: GASTROINTESTINAL DISORDER THERAPY
     Dosage: 100 MG
     Route: 041
     Dates: start: 20071121, end: 20071121
  4. RANITIDINE HYDROCHLORIDE [Suspect]
     Indication: PREMEDICATION
     Dosage: 100 MG
     Route: 041
     Dates: start: 20071121, end: 20071121
  5. DOCETAXEL [Concomitant]
  6. CARBOPLATIN [Concomitant]
  7. TULOBUTEROL [Concomitant]
  8. ZOLPIDEM TARTRATE [Concomitant]
  9. SENNOSIDE A+B [Concomitant]
  10. REBAMIPIDE [Concomitant]
  11. INDOMETHACIN [Concomitant]
  12. TEPRENONE [Concomitant]

REACTIONS (3)
  - ANAPHYLACTIC SHOCK [None]
  - C-REACTIVE PROTEIN INCREASED [None]
  - PYREXIA [None]
